FAERS Safety Report 5174405-8 (Version None)
Quarter: 2006Q4

REPORT INFORMATION
  Report Type: 
  Country: None (occurrence: None)
  Receive Date: 20061206
  Receipt Date: 20061124
  Transmission Date: 20070319
  Serious: Yes (Hospitalization)
  Sender: FDA-Public Use
  Company Number: VNL_0311_2006

PATIENT
  Sex: Male

DRUGS (1)
  1. APO-GO [Suspect]
     Indication: DRUG USE FOR UNKNOWN INDICATION
     Dosage: DF SC
     Route: 058

REACTIONS (3)
  - AGGRESSION [None]
  - CONFUSIONAL STATE [None]
  - PSYCHOTIC DISORDER [None]
